FAERS Safety Report 22113334 (Version 1)
Quarter: 2023Q1

REPORT INFORMATION
  Report Type: Spontaneous
  Country: GB (occurrence: GB)
  Receive Date: 20230320
  Receipt Date: 20230320
  Transmission Date: 20230418
  Serious: Yes (Hospitalization, Other)
  Sender: FDA-Public Use
  Company Number: None

PATIENT
  Age: 69 Year
  Sex: Male

DRUGS (10)
  1. SITAGLIPTIN PHOSPHATE [Suspect]
     Active Substance: SITAGLIPTIN PHOSPHATE
     Dosage: 100 MILLIGRAM, QD
     Route: 048
  2. BENDROFLUMETHIAZIDE [Suspect]
     Active Substance: BENDROFLUMETHIAZIDE
     Dosage: 2.5 MILLIGRAM, QD
     Route: 048
  3. DALTEPARIN [Suspect]
     Active Substance: DALTEPARIN
  4. ATORVASTATIN [Concomitant]
     Active Substance: ATORVASTATIN
     Dosage: 40 MILLIGRAM (MG), AT NIGHT (QPM)
  5. NOVORAPID [Concomitant]
     Active Substance: INSULIN ASPART
     Dates: start: 20230309
  6. PERINDOPRIL ERBUMINE [Concomitant]
     Active Substance: PERINDOPRIL ERBUMINE
  7. TRESIBA [Concomitant]
     Active Substance: INSULIN DEGLUDEC
     Dosage: 66 UNITS OM, FLEXTOUCH 200UNITS/ML 3ML PRE-FILLED PEN
  8. DEXTROSE [Concomitant]
     Active Substance: DEXTROSE
     Dosage: TAKE 1 DOSE WHEN BM IS BELOWS BELOW 4.0MMO/L. RE-CHECK BM AFTER 15 MINS. GLUCOGEL ORIGINAL
  9. SENNA+ [Concomitant]
     Dosage: PRN (POD X2)
  10. FLEXITOL [Concomitant]
     Dosage: AS DIRECTED - OM PRN

REACTIONS (1)
  - Pancytopenia [Recovered/Resolved]
